FAERS Safety Report 4960421-5 (Version None)
Quarter: 2006Q1

REPORT INFORMATION
  Report Type: 
  Country: None (occurrence: None)
  Receive Date: 20060328
  Receipt Date: 20060315
  Transmission Date: 20060701
  Serious: Yes (Disabling)
  Sender: FDA-Public Use
  Company Number: 2006038631

PATIENT
  Sex: Male

DRUGS (3)
  1. NEURONTIN [Suspect]
     Indication: ILL-DEFINED DISORDER
  2. XANAX [Suspect]
     Indication: ILL-DEFINED DISORDER
  3. CARBAMAZEPINE [Suspect]
     Indication: ILL-DEFINED DISORDER

REACTIONS (13)
  - BIRTH MARK [None]
  - BRUXISM [None]
  - CHROMOSOMAL DELETION [None]
  - CONGENITAL FOOT MALFORMATION [None]
  - CONGENITAL NOSE MALFORMATION [None]
  - DEVELOPMENTAL DELAY [None]
  - DRUG EXPOSURE DURING PREGNANCY [None]
  - FACIAL DYSMORPHISM [None]
  - FORCEPS DELIVERY [None]
  - FRAGILE X SYNDROME [None]
  - LOW SET EARS [None]
  - MACROSOMIA [None]
  - PSYCHOMOTOR HYPERACTIVITY [None]
